FAERS Safety Report 5649633-5 (Version None)
Quarter: 2008Q1

REPORT INFORMATION
  Report Type: 
  Country: None (occurrence: None)
  Receive Date: 20080304
  Receipt Date: 20080221
  Transmission Date: 20080703
  Serious: Yes (Other)
  Sender: FDA-Public Use
  Company Number: US-PFIZER INC-2008008354

PATIENT
  Sex: Female
  Weight: 78 kg

DRUGS (4)
  1. CHANTIX [Suspect]
     Indication: TOBACCO USER
     Dates: start: 20070101, end: 20070101
  2. ANTIDEPRESSANTS [Concomitant]
     Indication: DEPRESSION
  3. LEXAPRO [Concomitant]
  4. PROTONIX [Concomitant]

REACTIONS (3)
  - DEPRESSION [None]
  - SUICIDAL IDEATION [None]
  - SUICIDE ATTEMPT [None]
